FAERS Safety Report 22241533 (Version 3)
Quarter: 2024Q3

REPORT INFORMATION
  Report Type: Report from Study
  Country: CA (occurrence: CA)
  Receive Date: 20230421
  Receipt Date: 20240806
  Transmission Date: 20241017
  Serious: Yes (Other)
  Sender: NOVARTIS
  Company Number: CA-002147023-NVSC2023CA087480

PATIENT
  Age: 51 Year
  Sex: Female
  Weight: 99 kg

DRUGS (15)
  1. NILOTINIB [Suspect]
     Active Substance: NILOTINIB
     Indication: Product used for unknown indication
     Dosage: 300 MG, BID (THIRD LINE THERAPY)
     Route: 048
     Dates: start: 20180108, end: 20180307
  2. IMATINIB [Suspect]
     Active Substance: IMATINIB
     Indication: Product used for unknown indication
     Dosage: 400 MG, QD
     Route: 065
     Dates: start: 20211103, end: 20211201
  3. SCEMBLIX [Suspect]
     Active Substance: ASCIMINIB HYDROCHLORIDE
     Indication: Chronic myeloid leukaemia
     Dosage: 40 MG, BID
     Route: 048
     Dates: start: 20221015
  4. DASATINIB [Suspect]
     Active Substance: DASATINIB
     Indication: Product used for unknown indication
     Dosage: 70 MG, QD
     Route: 048
     Dates: end: 20180418
  5. DASATINIB [Suspect]
     Active Substance: DASATINIB
     Dosage: 70 MG, QD
     Route: 065
     Dates: start: 20191118
  6. BOSUTINIB [Suspect]
     Active Substance: BOSUTINIB
     Indication: Product used for unknown indication
     Dosage: 400 MG, QD
     Route: 048
     Dates: start: 20180418
  7. BOSUTINIB [Suspect]
     Active Substance: BOSUTINIB
     Dosage: 100 MG, QD (WITH PLANNED ESCALATION BY 100 MG QW TO 400 MG QD)
     Route: 048
     Dates: start: 20180503
  8. PANTOPRAZOLE [Concomitant]
     Active Substance: PANTOPRAZOLE
     Indication: Gastrooesophageal reflux disease
     Dosage: 40 MG, QD
     Route: 048
  9. PREDNISONE [Concomitant]
     Active Substance: PREDNISONE
     Indication: Product used for unknown indication
     Dosage: 50 MG
     Route: 065
  10. SYNTHROID [Concomitant]
     Active Substance: LEVOTHYROXINE SODIUM
     Indication: Product used for unknown indication
     Dosage: 0.112 MG, QD
     Route: 065
  11. BENADRYL [Concomitant]
     Active Substance: DIPHENHYDRAMINE HYDROCHLORIDE
     Indication: Product used for unknown indication
     Dosage: 25 MG, QD
     Route: 065
  12. LEVOTHYROXINE [Concomitant]
     Active Substance: LEVOTHYROXINE\LEVOTHYROXINE SODIUM
     Indication: Product used for unknown indication
     Dosage: UNK
     Route: 065
  13. ALLOPURINOL [Concomitant]
     Active Substance: ALLOPURINOL
     Indication: Rash maculo-papular
     Dosage: UNK
     Route: 065
  14. LASIX [Concomitant]
     Active Substance: FUROSEMIDE
     Indication: Product used for unknown indication
     Dosage: 40 MG, QD
     Route: 065
     Dates: start: 20211004, end: 20211102
  15. LASIX [Concomitant]
     Active Substance: FUROSEMIDE
     Dosage: 20 MG, QD
     Route: 065
     Dates: start: 20211006

REACTIONS (20)
  - Seronegative arthritis [Unknown]
  - Pericardial effusion [Unknown]
  - Hypertransaminasaemia [Unknown]
  - Bone pain [Unknown]
  - Blood bilirubin increased [Unknown]
  - Lip swelling [Unknown]
  - Urticaria [Unknown]
  - Dyspnoea [Unknown]
  - Pleural effusion [Unknown]
  - Oedema [Unknown]
  - Rash [Unknown]
  - Asthenia [Unknown]
  - Headache [Unknown]
  - Nausea [Unknown]
  - Dyspepsia [Unknown]
  - Abdominal pain [Unknown]
  - Early satiety [Unknown]
  - Malaise [Unknown]
  - C-reactive protein increased [Unknown]
  - Platelet count abnormal [Unknown]

NARRATIVE: CASE EVENT DATE: 20211018
